FAERS Safety Report 5256780-9 (Version None)
Quarter: 2007Q1

REPORT INFORMATION
  Report Type: 
  Country: None (occurrence: None)
  Receive Date: 20070306
  Receipt Date: 20070219
  Transmission Date: 20070707
  Serious: Yes (Hospitalization)
  Sender: FDA-Public Use
  Company Number: US-AMGEN-US211928

PATIENT
  Sex: Male

DRUGS (15)
  1. ARANESP [Suspect]
     Indication: RENAL FAILURE CHRONIC
     Route: 065
  2. FLUTICASONE/SALMETEROL [Concomitant]
  3. ASPIRIN [Concomitant]
  4. SAW PALMETTO [Concomitant]
  5. CHONDROITIN [Concomitant]
  6. TAMSULOSIN HCL [Concomitant]
  7. FLUOXETINE [Concomitant]
  8. POTASSIUM CHLORIDE [Concomitant]
  9. CARBIDOPA AND LEVODOPA [Concomitant]
  10. LEVOTHYROXINE SODIUM [Concomitant]
  11. CYANOCOBALAMIN [Concomitant]
  12. FUROSEMIDE [Concomitant]
  13. ENTACAPONE [Concomitant]
  14. MOMETASONE FUROATE MONOHYDRATE [Concomitant]
  15. FINASTERIDE [Concomitant]

REACTIONS (2)
  - FALL [None]
  - GROIN PAIN [None]
